FAERS Safety Report 22640630 (Version 1)
Quarter: 2023Q2

REPORT INFORMATION
  Report Type: Spontaneous
  Country: US (occurrence: None)
  Receive Date: 20230623
  Receipt Date: 20230623
  Transmission Date: 20230722
  Serious: Yes (Death)
  Sender: FDA-Public Use
  Company Number: None

PATIENT
  Age: 72 Year
  Sex: Female

DRUGS (17)
  1. CAPECITABINE [Suspect]
     Active Substance: CAPECITABINE
     Indication: Breast cancer female
     Dosage: 3 TABS  BID PO D1-14/21D CYCLE?
     Route: 050
  2. CAPECITABINE [Suspect]
     Active Substance: CAPECITABINE
     Indication: Breast cancer female
     Dosage: 1 TAB BID PO D1-14/21D CYCLE?
     Route: 050
  3. TYLENOL [Concomitant]
  4. AMITRIPTYLINE [Concomitant]
  5. CALCIUM CARBONATE-VIT D3M [Concomitant]
  6. DEXTROAMPHETAMINE [Concomitant]
  7. FASLODEX [Concomitant]
     Active Substance: FULVESTRANT
  8. FLUTICASONE FUROATE [Concomitant]
     Active Substance: FLUTICASONE FUROATE
  9. LACTOBACILLUS ACIDOPHILUS [Concomitant]
     Active Substance: LACTOBACILLUS ACIDOPHILUS
  10. METOCLOPRAMIDE [Concomitant]
     Active Substance: METOCLOPRAMIDE
  11. VITAMINS [Concomitant]
     Active Substance: VITAMINS
  12. NAPROXEN [Concomitant]
  13. MACROBID [Concomitant]
     Active Substance: NITROFURANTOIN\NITROFURANTOIN MONOHYDRATE
  14. ZOFRAN [Concomitant]
  15. PEPCID [Concomitant]
     Active Substance: FAMOTIDINE
  16. PROCHLORPERAZINE [Concomitant]
  17. ZOLEDRONIC ACID [Concomitant]
     Active Substance: ZOLEDRONIC ACID

REACTIONS (1)
  - Death [None]

NARRATIVE: CASE EVENT DATE: 20230613
